FAERS Safety Report 8788735 (Version 2)
Quarter: 2013Q4

REPORT INFORMATION
  Report Type: Spontaneous
  Country: US (occurrence: US)
  Receive Date: 20120916
  Receipt Date: 20131101
  Transmission Date: 20140711
  Serious: No
  Sender: FDA-Public Use
  Company Number: US-009507513-1208USA011335

PATIENT
  Sex: Female

DRUGS (1)
  1. ZETIA [Suspect]
     Indication: HYPERCHOLESTEROLAEMIA
     Dosage: 10 MG, QOD
     Route: 048

REACTIONS (3)
  - Myalgia [Recovering/Resolving]
  - Pain [Recovering/Resolving]
  - Inappropriate schedule of drug administration [Unknown]
